FAERS Safety Report 7368377-5 (Version None)
Quarter: 2011Q1

REPORT INFORMATION
  Report Type: 
  Country: None (occurrence: None)
  Receive Date: 20110323
  Receipt Date: 20110316
  Transmission Date: 20110831
  Serious: Yes (Life-Threatening)
  Sender: FDA-Public Use
  Company Number: CH-CELGENEUS-151-50794-11030386

PATIENT
  Age: 74 Year
  Sex: Female

DRUGS (3)
  1. VIDAZA [Suspect]
     Dosage: 170 MILLIGRAM
     Route: 058
     Dates: start: 20091209
  2. VIDAZA [Suspect]
     Dosage: 85 MILLIGRAM
     Route: 058
     Dates: start: 20101122, end: 20101127
  3. VIDAZA [Suspect]
     Dosage: 170 MILLIGRAM
     Route: 058
     Dates: start: 20101025, end: 20101029

REACTIONS (1)
  - NEUTROPENIA [None]
